FAERS Safety Report 8845813 (Version 1)
Quarter: 2012Q4

REPORT INFORMATION
  Report Type: 
  Country: BR (occurrence: BR)
  Receive Date: 20121017
  Receipt Date: 20121017
  Transmission Date: 20130627
  Serious: Yes (Other)
  Sender: FDA-Public Use
  Company Number: PHHY2012BR091416

PATIENT
  Age: 61 Year
  Sex: Female

DRUGS (1)
  1. CALCIUM CARBONATE [Suspect]
     Indication: OSTEOPOROSIS
     Dosage: 1 DF, daily
     Route: 048

REACTIONS (3)
  - Rib fracture [Recovered/Resolved]
  - Humerus fracture [Recovered/Resolved]
  - Lower limb fracture [Not Recovered/Not Resolved]
